FAERS Safety Report 20735177 (Version 2)
Quarter: 2022Q3

REPORT INFORMATION
  Report Type: Spontaneous
  Country: US (occurrence: US)
  Receive Date: 20220421
  Receipt Date: 20220816
  Transmission Date: 20221027
  Serious: No
  Sender: FDA-Public Use
  Company Number: US-PFIZER INC-202200459989

PATIENT
  Age: 62 Year
  Sex: Female

DRUGS (1)
  1. PRISTIQ EXTENDED-RELEASE [Suspect]
     Active Substance: DESVENLAFAXINE SUCCINATE
     Indication: Depression
     Dosage: 100 MG, 1X/DAY (100MG ONE TIME A DAY)

REACTIONS (3)
  - Ear discomfort [Unknown]
  - Feeling abnormal [Unknown]
  - Product dose omission in error [Unknown]
